FAERS Safety Report 7919557-9 (Version None)
Quarter: 2011Q4

REPORT INFORMATION
  Report Type: 
  Country: None (occurrence: None)
  Receive Date: 20111116
  Receipt Date: 20111116
  Transmission Date: 20120403
  Serious: Yes (Hospitalization)
  Sender: FDA-Public Use
  Company Number: None

PATIENT
  Age: 56 Year
  Sex: Female
  Weight: 96.7 kg

DRUGS (14)
  1. HYDROXYZINE [Concomitant]
  2. HYDROCHLOROTHIAZIDE [Concomitant]
  3. DEXILANT [Suspect]
     Indication: GASTROOESOPHAGEAL REFLUX DISEASE
     Dosage: DAILY PO  RECENT
     Route: 048
  4. TRAZODONE HCL [Concomitant]
  5. NEURONTIN [Concomitant]
  6. TRIAMTERENE [Concomitant]
  7. NEXIUM [Concomitant]
  8. MS CONTIN [Concomitant]
  9. PHENERGAN [Concomitant]
  10. METOPROLOL TARTRATE [Concomitant]
  11. LEVAQUIN [Concomitant]
  12. METFORMIN HCL [Concomitant]
  13. CARISOPROLOL [Concomitant]
  14. PERCOCET [Concomitant]

REACTIONS (2)
  - DERMATITIS ALLERGIC [None]
  - HYPONATRAEMIA [None]
